FAERS Safety Report 15213817 (Version 1)
Quarter: 2018Q3

REPORT INFORMATION
  Report Type: Spontaneous
  Country: US (occurrence: US)
  Receive Date: 20180730
  Receipt Date: 20180730
  Transmission Date: 20181010
  Serious: Yes (Other)
  Sender: FDA-Public Use
  Company Number: US-SA-2018SA073850

PATIENT
  Age: 43 Year
  Sex: Female
  Weight: 67 kg

DRUGS (6)
  1. TAXOTERE [Suspect]
     Active Substance: DOCETAXEL
     Indication: BREAST CANCER FEMALE
     Dosage: 131 MG,Q3W
     Route: 042
     Dates: start: 20140605, end: 20140605
  2. HERCEPTIN [Concomitant]
     Active Substance: TRASTUZUMAB
  3. TAXOTERE [Suspect]
     Active Substance: DOCETAXEL
     Dosage: 131 MG,Q3W
     Route: 042
     Dates: start: 20150128, end: 20150128
  4. TAMOXIFEN [Concomitant]
     Active Substance: TAMOXIFEN
  5. PARAPLATIN [Concomitant]
     Active Substance: CARBOPLATIN
  6. PERTUZUMAB. [Concomitant]
     Active Substance: PERTUZUMAB

REACTIONS (3)
  - Alopecia [Recovering/Resolving]
  - Emotional distress [Unknown]
  - Anxiety [Unknown]

NARRATIVE: CASE EVENT DATE: 201507
